FAERS Safety Report 7248457-5 (Version None)
Quarter: 2011Q1

REPORT INFORMATION
  Report Type: 
  Country: None (occurrence: None)
  Receive Date: 20110127
  Receipt Date: 20110124
  Transmission Date: 20110831
  Serious: Yes (Other)
  Sender: FDA-Public Use
  Company Number: GB-PFIZER INC-2011017109

PATIENT
  Age: 82 Year
  Sex: Female

DRUGS (6)
  1. SIMVASTATIN [Concomitant]
  2. ACETYLSALICYLIC ACID [Concomitant]
  3. RAMIPRIL [Concomitant]
  4. CHAMPIX [Suspect]
     Indication: SMOKING CESSATION THERAPY
     Dosage: 0.5 MG, 2X/DAY
     Route: 048
     Dates: start: 20110106, end: 20110113
  5. VENTOLIN [Suspect]
  6. SERETIDE [Concomitant]

REACTIONS (3)
  - ANXIETY [None]
  - DYSPNOEA [None]
  - DRUG INEFFECTIVE [None]
